FAERS Safety Report 23800251 (Version 2)
Quarter: 2024Q2

REPORT INFORMATION
  Report Type: Report from Study
  Country: US (occurrence: US)
  Receive Date: 20240430
  Receipt Date: 20240625
  Transmission Date: 20240716
  Serious: Yes (Other)
  Sender: FDA-Public Use
  Company Number: US-BAYER-2024A060215

PATIENT
  Age: 46 Year
  Sex: Female

DRUGS (4)
  1. ADEMPAS [Suspect]
     Active Substance: RIOCIGUAT
     Indication: Pulmonary arterial hypertension
     Dosage: UNK
     Route: 048
  2. ADEMPAS [Suspect]
     Active Substance: RIOCIGUAT
     Indication: Pulmonary arterial hypertension
     Dosage: 1 MG, TID
     Route: 048
     Dates: start: 202404
  3. ADEMPAS [Suspect]
     Active Substance: RIOCIGUAT
     Indication: Pulmonary arterial hypertension
     Dosage: 2 MG, TID
     Route: 048
     Dates: start: 202405
  4. OPSUMIT [Concomitant]
     Active Substance: MACITENTAN

REACTIONS (6)
  - Ascites [None]
  - Hypotension [Not Recovered/Not Resolved]
  - Dyspnoea exertional [None]
  - Rash [None]
  - Abdominal distension [None]
  - Pain in jaw [None]

NARRATIVE: CASE EVENT DATE: 20240401
